FAERS Safety Report 16143434 (Version 1)
Quarter: 2019Q2

REPORT INFORMATION
  Report Type: Spontaneous
  Country: US (occurrence: US)
  Receive Date: 20190401
  Receipt Date: 20190401
  Transmission Date: 20190711
  Serious: Yes (Death)
  Sender: FDA-Public Use
  Company Number: US-B. BRAUN MEDICAL INC.-2065070

PATIENT
  Sex: Male

DRUGS (3)
  1. STERILE WATER [Concomitant]
     Active Substance: WATER
     Route: 042
  2. ERTAPENEM. [Concomitant]
     Active Substance: ERTAPENEM SODIUM
     Route: 042
  3. SODIUM CHLORIDE INJECTION USP 0264-7800-09 [Suspect]
     Active Substance: SODIUM CHLORIDE
     Route: 042

REACTIONS (5)
  - Muscle fatigue [None]
  - Muscular weakness [None]
  - Limb discomfort [None]
  - Hypoaesthesia [None]
  - Fatigue [None]
